FAERS Safety Report 8995249 (Version 2)
Quarter: 2013Q1

REPORT INFORMATION
  Report Type: Spontaneous
  Country: US (occurrence: None)
  Receive Date: 20121221
  Receipt Date: 20130118
  Transmission Date: 20140127
  Serious: Yes (Hospitalization, Other)
  Sender: FDA-Public Use
  Company Number: 2012SGN00095

PATIENT
  Age: 33 Year
  Sex: Female
  Weight: 116.8 kg

DRUGS (1)
  1. BRENTUXIMAB VEDOTIN [Suspect]
     Indication: DIFFUSE LARGE B-CELL LYMPHOMA
     Route: 042
     Dates: start: 20120223, end: 20120223

REACTIONS (4)
  - Graft versus host disease [None]
  - Thrombocytopenia [None]
  - Neutropenia [None]
  - Feeling abnormal [None]
